FAERS Safety Report 9123486 (Version 1)
Quarter: 2013Q1

REPORT INFORMATION
  Report Type: Spontaneous
  Country: CN (occurrence: None)
  Receive Date: 20130129
  Receipt Date: 20130129
  Transmission Date: 20140127
  Serious: Yes (Other)
  Sender: FDA-Public Use
  Company Number: VAL_01307_2013

PATIENT
  Age: 65 Year
  Sex: Female
  Weight: 60 kg

DRUGS (1)
  1. LOTENSIN /00909102/ [Suspect]
     Indication: CORONARY ARTERY DISEASE
     Dosage: 10 ONCE/SINGLE ORAL
     Route: 048
     Dates: start: 20100201, end: 20100201

REACTIONS (3)
  - Anaphylactoid reaction [None]
  - Cough [None]
  - Insomnia [None]
